FAERS Safety Report 16198143 (Version 2)
Quarter: 2019Q2

REPORT INFORMATION
  Report Type: Spontaneous
  Country: CA (occurrence: CA)
  Receive Date: 20190415
  Receipt Date: 20190527
  Transmission Date: 20190711
  Serious: Yes (Death, Congenital Anomaly, Other)
  Sender: FDA-Public Use
  Company Number: CA-APOTEX-2019AP011872

PATIENT
  Sex: Female

DRUGS (1)
  1. PAXIL [Suspect]
     Active Substance: PAROXETINE HYDROCHLORIDE
     Indication: PRODUCT USED FOR UNKNOWN INDICATION
     Dosage: UNK
     Route: 064

REACTIONS (25)
  - Pulmonary artery stenosis congenital [Unknown]
  - Vocal cord paralysis [Unknown]
  - Motor dysfunction [Unknown]
  - Lung disorder [Unknown]
  - Premature baby [Unknown]
  - Hypotonia neonatal [Unknown]
  - Haemorrhage [Unknown]
  - Joint dislocation [Unknown]
  - Developmental delay [Unknown]
  - Hypoglycaemia neonatal [Unknown]
  - Hypertonia [Unknown]
  - Foetal exposure during pregnancy [Unknown]
  - Congenital laryngeal stridor [Unknown]
  - Congenital musculoskeletal anomaly [Unknown]
  - Deafness [Unknown]
  - Hypoxic-ischaemic encephalopathy [Unknown]
  - Hypoventilation neonatal [Unknown]
  - Hypocalcaemia [Unknown]
  - Cleft palate [Unknown]
  - Asphyxia [Unknown]
  - Joint stiffness [Unknown]
  - Death [Fatal]
  - Blindness cortical [Unknown]
  - Supraventricular extrasystoles [Unknown]
  - Joint contracture [Unknown]

NARRATIVE: CASE EVENT DATE: 20050920
